FAERS Safety Report 10075814 (Version 6)
Quarter: 2015Q1

REPORT INFORMATION
  Report Type: Spontaneous
  Country: US (occurrence: US)
  Receive Date: 20140414
  Receipt Date: 20150220
  Transmission Date: 20150720
  Serious: No
  Sender: FDA-Public Use
  Company Number: US-009507513-1404USA004058

PATIENT
  Sex: Male
  Weight: 108.84 kg

DRUGS (2)
  1. PROPECIA [Suspect]
     Active Substance: FINASTERIDE
     Indication: ALOPECIA
     Dosage: 1 MG, QD
     Route: 048
     Dates: start: 20050120, end: 20061006
  2. VIAGRA [Concomitant]
     Active Substance: SILDENAFIL CITRATE
     Dosage: 100 MG, PRN
     Route: 048
     Dates: start: 2002

REACTIONS (26)
  - Headache [Unknown]
  - Hypertension [Unknown]
  - Hernia repair [Unknown]
  - Thirst [Unknown]
  - Weight decreased [Unknown]
  - Cognitive disorder [Not Recovered/Not Resolved]
  - Muscle strain [Unknown]
  - Depression [Not Recovered/Not Resolved]
  - Hunger [Unknown]
  - Bronchitis [Unknown]
  - Hunger [Unknown]
  - Palpitations [Unknown]
  - Arthritis [Unknown]
  - Fatigue [Not Recovered/Not Resolved]
  - Loss of libido [Not Recovered/Not Resolved]
  - Erectile dysfunction [Not Recovered/Not Resolved]
  - Feeling abnormal [Unknown]
  - Hypogonadism [Recovering/Resolving]
  - Dizziness [Unknown]
  - Sexual dysfunction [Not Recovered/Not Resolved]
  - Fatigue [Unknown]
  - Feeling cold [Unknown]
  - Paraesthesia oral [Unknown]
  - Blood testosterone decreased [Unknown]
  - Anxiety [Not Recovered/Not Resolved]
  - Joint injection [Unknown]

NARRATIVE: CASE EVENT DATE: 200503
